FAERS Safety Report 7626264-9 (Version None)
Quarter: 2011Q3

REPORT INFORMATION
  Report Type: 
  Country: None (occurrence: None)
  Receive Date: 20110721
  Receipt Date: 20110711
  Transmission Date: 20111222
  Serious: Yes (Death)
  Sender: FDA-Public Use
  Company Number: US-ACTELION-A-NJ2011-51443

PATIENT

DRUGS (3)
  1. REVATIO [Concomitant]
  2. TRACLEER [Suspect]
     Indication: PULMONARY ARTERIAL HYPERTENSION
     Dosage: UNK
     Route: 048
     Dates: start: 20100617, end: 20110705
  3. CALCIUM CHANNEL BLOCKERS [Concomitant]

REACTIONS (2)
  - DISEASE COMPLICATION [None]
  - PULMONARY ARTERIAL HYPERTENSION [None]
